FAERS Safety Report 18758877 (Version 2)
Quarter: 2021Q1

REPORT INFORMATION
  Report Type: Spontaneous
  Country: US (occurrence: US)
  Receive Date: 20210119
  Receipt Date: 20210127
  Transmission Date: 20210419
  Serious: Yes (Hospitalization, Other)
  Sender: FDA-Public Use
  Company Number: US-PFIZER INC-2003036846

PATIENT
  Age: 56 Year
  Sex: Male

DRUGS (11)
  1. BUSPIRONE [Concomitant]
     Active Substance: BUSPIRONE HYDROCHLORIDE
     Dosage: UNK
     Route: 065
     Dates: start: 200003
  2. SIMVASTATIN. [Interacting]
     Active Substance: SIMVASTATIN
     Dosage: 80 MG, DAILY
  3. IBUPROFEN. [Concomitant]
     Active Substance: IBUPROFEN
     Dosage: UNK
     Route: 065
     Dates: start: 2000
  4. TEMAZEPAM. [Interacting]
     Active Substance: TEMAZEPAM
     Dosage: UNK
     Route: 065
     Dates: end: 2000
  5. NEFAZODONE [Interacting]
     Active Substance: NEFAZODONE
     Dosage: UNK
     Route: 065
     Dates: start: 200003, end: 2000
  6. ACETYLSALICYLIC ACID [Concomitant]
     Active Substance: ASPIRIN
     Dosage: UNK
     Route: 065
     Dates: start: 200003
  7. AZITHROMYCIN ANHYDROUS. [Suspect]
     Active Substance: AZITHROMYCIN ANHYDROUS
     Indication: SINUSITIS
     Dosage: UNK
     Route: 065
     Dates: start: 2000
  8. SIMVASTATIN. [Interacting]
     Active Substance: SIMVASTATIN
     Indication: HYPERCHOLESTEROLAEMIA
     Dosage: 40 MG, DAILY
     Route: 048
     Dates: end: 2000
  9. FEXOFENADINE [Interacting]
     Active Substance: FEXOFENADINE HYDROCHLORIDE
     Indication: NASAL CONGESTION
     Dosage: UNK, 2X/DAY
     Route: 065
     Dates: end: 2000
  10. ISOMETHEPTENE MUCATE [Interacting]
     Active Substance: ISOMETHEPTENE MUCATE
     Indication: HEADACHE
     Dosage: UNK, AS NEEDED
     Route: 065
     Dates: start: 2000
  11. LISINOPRIL. [Concomitant]
     Active Substance: LISINOPRIL
     Dosage: UNK
     Route: 065
     Dates: start: 200003

REACTIONS (3)
  - Drug interaction [Unknown]
  - Off label use [Unknown]
  - Rhabdomyolysis [Recovering/Resolving]

NARRATIVE: CASE EVENT DATE: 2000
